FAERS Safety Report 10409447 (Version 1)
Quarter: 2014Q3

REPORT INFORMATION
  Report Type: Spontaneous
  Country: US (occurrence: None)
  Receive Date: 20140825
  Receipt Date: 20140825
  Transmission Date: 20150326
  Serious: No
  Sender: FDA-Public Use
  Company Number: None

PATIENT
  Age: 59 Year
  Sex: Female

DRUGS (8)
  1. CARBOXYMETHYLCELLULOSE-GLYCERIN OPHT DROP [Concomitant]
  2. CETIRIZINE [Concomitant]
     Active Substance: CETIRIZINE HYDROCHLORIDE
  3. PEUDOSPHEDRINE [Concomitant]
  4. ACYCLOVIR. [Concomitant]
     Active Substance: ACYCLOVIR
  5. REVLIMID [Suspect]
     Active Substance: LENALIDOMIDE
     Indication: PLASMA CELL MYELOMA
     Dosage: 2.5 MG, DAILY X21D/28D, ORALLY
     Route: 048
     Dates: start: 20140724, end: 20140811
  6. DOXYCYCLINE MONOHYDRATE [Concomitant]
     Active Substance: DOXYCYCLINE
  7. POTASSIUM CHLORIDE. [Concomitant]
     Active Substance: POTASSIUM CHLORIDE
  8. DEXTROMETHORPHAN-GUAIFENESIN [Concomitant]

REACTIONS (10)
  - Oedema mucosal [None]
  - Productive cough [None]
  - Pulmonary congestion [None]
  - Chest pain [None]
  - Pyrexia [None]
  - Pain [None]
  - Pharyngeal oedema [None]
  - Dyspnoea [None]
  - Bronchitis [None]
  - Pharyngeal erythema [None]

NARRATIVE: CASE EVENT DATE: 20140811
